FAERS Safety Report 9402066 (Version 1)
Quarter: 2013Q3

REPORT INFORMATION
  Report Type: Spontaneous
  Country: FR (occurrence: FR)
  Receive Date: 20130716
  Receipt Date: 20130716
  Transmission Date: 20140515
  Serious: Yes (Hospitalization)
  Sender: FDA-Public Use
  Company Number: PHHY2013FR074004

PATIENT
  Age: 65 Year
  Sex: Female

DRUGS (8)
  1. STALEVO [Suspect]
     Dosage: UNK
     Route: 048
     Dates: start: 2010, end: 20130125
  2. TRIVASTAL [Suspect]
     Dosage: UNK UKN, UNK
     Route: 048
     Dates: start: 2010, end: 20130514
  3. TRIVASTAL [Suspect]
     Dosage: UNK UKN, UNK
     Dates: start: 20130514, end: 20130625
  4. SEROPLEX [Concomitant]
     Dosage: UNK UKN, UNK
     Route: 048
  5. SEROPLEX [Concomitant]
     Dosage: UNK UKN, UNK
     Route: 048
  6. LODOZ [Concomitant]
     Dosage: 5MG/6.25 MG QD
     Route: 048
  7. KARDEGIC [Concomitant]
     Dosage: QW3
     Route: 048
  8. XEROQUEL [Concomitant]
     Dosage: UNK UKN, UNK
     Dates: start: 20130619

REACTIONS (3)
  - Psychotic disorder [Recovered/Resolved]
  - Hallucination, visual [Recovered/Resolved]
  - Anxiety [Recovered/Resolved]
